FAERS Safety Report 4507887-2 (Version None)
Quarter: 2004Q4

REPORT INFORMATION
  Report Type: 
  Country: None (occurrence: None)
  Receive Date: 20041123
  Receipt Date: 20041019
  Transmission Date: 20050328
  Serious: Yes (Other)
  Sender: FDA-Public Use
  Company Number: US-MERCK-0410USA02895

PATIENT
  Age: 42 Year
  Sex: Male

DRUGS (2)
  1. VIOXX [Suspect]
     Indication: ARTHRITIS
     Route: 048
     Dates: start: 19990101
  2. TRAZODONE HYDROCHLORIDE [Concomitant]
     Route: 065

REACTIONS (3)
  - GASTRIC INFECTION [None]
  - MYOCARDIAL INFARCTION [None]
  - SKIN DISCOLOURATION [None]
